FAERS Safety Report 10475378 (Version 1)
Quarter: 2014Q3

REPORT INFORMATION
  Report Type: Spontaneous
  Country: US (occurrence: None)
  Receive Date: 20140924
  Receipt Date: 20140924
  Transmission Date: 20150326
  Serious: Yes (Other)
  Sender: FDA-Public Use
  Company Number: None

PATIENT
  Sex: Female

DRUGS (19)
  1. SOVALDI [Suspect]
     Active Substance: SOFOSBUVIR
     Indication: HEPATITIS
     Route: 048
     Dates: start: 20140729
  2. ZOLPIDEM [Concomitant]
     Active Substance: ZOLPIDEM\ZOLPIDEM TARTRATE
  3. OMEGA 3 [Concomitant]
     Active Substance: OMEGA-3 FATTY ACIDS
  4. VITAMIN D [Concomitant]
     Active Substance: CHOLECALCIFEROL
  5. VIVELLE DDT [Concomitant]
  6. ASPIRIN. [Concomitant]
     Active Substance: ASPIRIN
  7. SERTRALINE [Concomitant]
     Active Substance: SERTRALINE HYDROCHLORIDE
  8. CLONAZEPAM. [Concomitant]
     Active Substance: CLONAZEPAM
  9. ZOLOFT [Concomitant]
     Active Substance: SERTRALINE HYDROCHLORIDE
  10. ZOLPIDEM [Concomitant]
     Active Substance: ZOLPIDEM\ZOLPIDEM TARTRATE
  11. CLONAZEPAM. [Concomitant]
     Active Substance: CLONAZEPAM
  12. VITAMIN C [Concomitant]
     Active Substance: ASCORBIC ACID
  13. FLUTICASONE [Concomitant]
     Active Substance: FLUTICASONE\FLUTICASONE PROPIONATE
  14. CLONAZEPAM. [Concomitant]
     Active Substance: CLONAZEPAM
  15. CLOMAZEPAM [Concomitant]
  16. SPRENAMINE [Concomitant]
  17. CALCIUM [Concomitant]
     Active Substance: CALCIUM
  18. VITAMIN B [Concomitant]
     Active Substance: VITAMIN B
  19. SILYMAPIN [Concomitant]

REACTIONS (4)
  - Headache [None]
  - Insomnia [None]
  - Irritability [None]
  - Anxiety [None]
